FAERS Safety Report 9509632 (Version 1)
Quarter: 2013Q3

REPORT INFORMATION
  Report Type: Spontaneous
  Country: US (occurrence: US)
  Receive Date: 20130909
  Receipt Date: 20130909
  Transmission Date: 20140515
  Serious: No
  Sender: FDA-Public Use
  Company Number: US-BRISTOL-MYERS SQUIBB COMPANY-18909853

PATIENT
  Age: 52 Year
  Sex: Female

DRUGS (6)
  1. ABILIFY TABS 15 MG [Suspect]
     Indication: BIPOLAR DISORDER
  2. LISINOPRIL + HCTZ [Concomitant]
  3. PRAVASTATIN SODIUM [Concomitant]
  4. GABAPENTIN [Concomitant]
  5. BUPROPION [Concomitant]
  6. OMEPRAZOLE [Concomitant]

REACTIONS (1)
  - Dysphagia [Unknown]
